FAERS Safety Report 4583089-9 (Version None)
Quarter: 2005Q1

REPORT INFORMATION
  Report Type: 
  Country: None (occurrence: None)
  Receive Date: 20050125
  Receipt Date: 20041013
  Transmission Date: 20050727
  Serious: No
  Sender: FDA-Public Use
  Company Number: USA041079985

PATIENT
  Age: 89 Year
  Sex: Female

DRUGS (3)
  1. FORTEO [Suspect]
     Indication: OSTEOPOROSIS
     Dates: start: 20040927
  2. MIACALCIN [Concomitant]
  3. FUROSEMIDE [Concomitant]

REACTIONS (3)
  - ARTHRALGIA [None]
  - FEAR [None]
  - PAIN IN EXTREMITY [None]
